FAERS Safety Report 9016505 (Version 3)
Quarter: 2013Q1

REPORT INFORMATION
  Report Type: Report from Study
  Country: DK (occurrence: DK)
  Receive Date: 20130116
  Receipt Date: 20130131
  Transmission Date: 20140127
  Serious: Yes (Hospitalization)
  Sender: FDA-Public Use
  Company Number: DK-EISAI INC-E7389-03434-CLI-DK

PATIENT
  Age: 59 Year
  Sex: Female

DRUGS (2)
  1. E7389 (BOLD) [Suspect]
     Indication: SARCOMA
     Route: 041
     Dates: start: 20130103, end: 20130103
  2. E7389 (BOLD) [Suspect]
     Route: 041
     Dates: start: 20130116

REACTIONS (1)
  - Lung infection [Recovered/Resolved]
